FAERS Safety Report 5821380-6 (Version None)
Quarter: 2008Q3

REPORT INFORMATION
  Report Type: 
  Country: None (occurrence: None)
  Receive Date: 20080721
  Receipt Date: 20080710
  Transmission Date: 20090109
  Serious: Yes (Hospitalization)
  Sender: FDA-Public Use
  Company Number: 2008BI014750

PATIENT
  Age: 58 Year
  Sex: Female
  Weight: 90.7194 kg

DRUGS (2)
  1. AVONEX [Suspect]
     Indication: MULTIPLE SCLEROSIS
     Dosage: 30 UG;QW;IM
     Route: 030
     Dates: start: 19980101
  2. PREMARIN [Concomitant]

REACTIONS (8)
  - ABDOMINAL PAIN [None]
  - APHONIA [None]
  - ARTERIOSCLEROSIS [None]
  - ATELECTASIS [None]
  - DEEP VEIN THROMBOSIS [None]
  - FLANK PAIN [None]
  - HYDROCHOLECYSTIS [None]
  - PLEURAL EFFUSION [None]
